FAERS Safety Report 5117670-5 (Version None)
Quarter: 2006Q3

REPORT INFORMATION
  Report Type: 
  Country: None (occurrence: None)
  Receive Date: 20060926
  Receipt Date: 20060828
  Transmission Date: 20061208
  Serious: Yes (Other)
  Sender: FDA-Public Use
  Company Number: CHNY2006JP02539

PATIENT
  Age: 48 Year
  Sex: Female

DRUGS (2)
  1. NICOTINE [Suspect]
     Dosage: SEE IMAGE
     Route: 062
     Dates: start: 20060729, end: 20060820
  2. NICOTINE [Suspect]
     Dosage: SEE IMAGE
     Route: 062
     Dates: start: 20060821

REACTIONS (2)
  - APPLICATION SITE DERMATITIS [None]
  - URTICARIA GENERALISED [None]
